FAERS Safety Report 20854527 (Version 1)
Quarter: 2022Q2

REPORT INFORMATION
  Report Type: Spontaneous
  Country: US (occurrence: US)
  Receive Date: 20220520
  Receipt Date: 20220520
  Transmission Date: 20220721
  Serious: No
  Sender: FDA-Public Use
  Company Number: US-PFIZER INC-202200713380

PATIENT
  Age: 69 Year
  Sex: Male

DRUGS (5)
  1. PAXLOVID [Suspect]
     Active Substance: NIRMATRELVIR\RITONAVIR
     Indication: COVID-19 treatment
     Dosage: UNK
     Dates: start: 20220506, end: 20220511
  2. COLD + FLU RELIEF [ARMORACIA RUSTICANA ROOT;SALIX ALBA STEM BARK;SAMBU [Concomitant]
     Dosage: NIGHT TIME
     Dates: start: 20220505, end: 20220509
  3. COLD + FLU RELIEF [ARMORACIA RUSTICANA ROOT;SALIX ALBA STEM BARK;SAMBU [Concomitant]
     Dosage: DAY TIME
     Dates: start: 20220506, end: 20220508
  4. KIRKLAND SIGNATURE ALLERCLEAR [Concomitant]
     Active Substance: LORATADINE
     Dosage: UNK
     Dates: start: 20220501, end: 20220514
  5. MUCUS RELIEF DM [Concomitant]
     Active Substance: DEXTROMETHORPHAN HYDROBROMIDE\GUAIFENESIN
     Dosage: UNK
     Dates: start: 20220511, end: 20220514

REACTIONS (2)
  - COVID-19 [Not Recovered/Not Resolved]
  - Disease recurrence [Not Recovered/Not Resolved]

NARRATIVE: CASE EVENT DATE: 20220513
